FAERS Safety Report 8846983 (Version 1)
Quarter: 2012Q4

REPORT INFORMATION
  Report Type: 
  Country: US (occurrence: US)
  Receive Date: 20121018
  Receipt Date: 20121018
  Transmission Date: 20130627
  Serious: No
  Sender: FDA-Public Use
  Company Number: US-PFIZER INC-2012259312

PATIENT
  Age: 55 Year
  Sex: Male

DRUGS (3)
  1. NICOTROL INHALER [Suspect]
     Indication: SMOKING CESSATION THERAPY
     Dosage: UNK, 5x/day
     Dates: start: 201209, end: 20121015
  2. LISINOPRIL [Concomitant]
     Indication: HYPERTENSION
     Dosage: 50 mg, 2x/day
  3. PLAVIX [Concomitant]
     Indication: PERIPHERAL ARTERIAL OCCLUSIVE DISEASE
     Dosage: 75 mg, daily

REACTIONS (2)
  - Product quality issue [Unknown]
  - Cough [Not Recovered/Not Resolved]
